FAERS Safety Report 25092020 (Version 2)
Quarter: 2025Q1

REPORT INFORMATION
  Report Type: Report from Study
  Country: JP (occurrence: JP)
  Receive Date: 20250318
  Receipt Date: 20250324
  Transmission Date: 20250408
  Serious: No
  Sender: ABBVIE
  Company Number: JP-ABBVIE-6166962

PATIENT
  Age: 76 Year
  Sex: Female

DRUGS (1)
  1. VYALEV [Suspect]
     Active Substance: FOSCARBIDOPA\FOSLEVODOPA
     Indication: Parkinson^s disease
     Route: 058
     Dates: start: 20250212

REACTIONS (6)
  - Malaise [Unknown]
  - Parkinson^s disease [Unknown]
  - Therapeutic product effect decreased [Unknown]
  - Infusion site mass [Unknown]
  - Infusion site mass [Unknown]
  - Infusion site reaction [Unknown]

NARRATIVE: CASE EVENT DATE: 20250101
